FAERS Safety Report 8538140-8 (Version None)
Quarter: 2012Q3

REPORT INFORMATION
  Report Type: 
  Country: None (occurrence: None)
  Receive Date: 20120726
  Receipt Date: 20120723
  Transmission Date: 20120928
  Serious: Yes (Hospitalization)
  Sender: FDA-Public Use
  Company Number: US-009507513-1207USA008930

PATIENT

DRUGS (4)
  1. VYTORIN [Suspect]
     Route: 048
  2. ESOMEPRAZOLE [Suspect]
     Route: 048
  3. AFLURIA [Suspect]
     Indication: PROPHYLAXIS
     Route: 030
  4. TAMSULOSIN HYDROCHLORIDE [Suspect]

REACTIONS (8)
  - ASTHMA [None]
  - EOSINOPHILIA [None]
  - COUGH [None]
  - SINUSITIS [None]
  - MANTLE CELL LYMPHOMA [None]
  - EOSINOPHILIC PNEUMONIA CHRONIC [None]
  - RESTRICTIVE PULMONARY DISEASE [None]
  - DYSPNOEA EXERTIONAL [None]
